FAERS Safety Report 8480202-8 (Version None)
Quarter: 2012Q2

REPORT INFORMATION
  Report Type: 
  Country: None (occurrence: None)
  Receive Date: 20120629
  Receipt Date: 20120622
  Transmission Date: 20120825
  Serious: Yes (Hospitalization, Disabling, Other)
  Sender: FDA-Public Use
  Company Number: US-MERCK-1203USA03299

PATIENT
  Age: 71 Year
  Sex: Female
  Weight: 61 kg

DRUGS (11)
  1. FOSAMAX [Suspect]
     Indication: OSTEOPOROSIS
     Route: 048
     Dates: start: 19970101, end: 20090608
  2. FOSAMAX [Suspect]
     Route: 048
     Dates: start: 19970101, end: 20090608
  3. FOSAMAX PLUS D [Suspect]
     Indication: OSTEOPENIA
     Route: 048
  4. FOSAMAX [Suspect]
     Indication: OSTEOPENIA
     Route: 048
     Dates: start: 19970101, end: 20090608
  5. ALLEGRA [Concomitant]
     Indication: HYPERSENSITIVITY
     Route: 065
  6. ACTONEL [Concomitant]
     Indication: OSTEOPOROSIS
     Route: 065
     Dates: start: 20090609, end: 20101210
  7. CALCIUM (UNSPECIFIED) [Concomitant]
     Indication: OSTEOPOROSIS
     Route: 065
  8. FOSAMAX [Suspect]
     Route: 048
     Dates: start: 19970101, end: 20090608
  9. FOSAMAX PLUS D [Suspect]
     Indication: OSTEOPOROSIS
     Route: 048
  10. LIPITOR [Concomitant]
     Indication: BLOOD CHOLESTEROL
     Route: 065
     Dates: start: 19950101
  11. NASACORT [Concomitant]
     Indication: HYPERSENSITIVITY
     Route: 065

REACTIONS (41)
  - SPLEEN DISORDER [None]
  - ADENOMA BENIGN [None]
  - OSTEOARTHRITIS [None]
  - FRACTURE [None]
  - PHLEBITIS [None]
  - EXOSTOSIS [None]
  - ARTHRITIS [None]
  - FEMUR FRACTURE [None]
  - JOINT DISLOCATION [None]
  - DIZZINESS [None]
  - HIP FRACTURE [None]
  - SPINAL DISORDER [None]
  - GASTROINTESTINAL STROMAL TUMOUR [None]
  - INTERVERTEBRAL DISC PROTRUSION [None]
  - GASTROOESOPHAGEAL REFLUX DISEASE [None]
  - GAIT DISTURBANCE [None]
  - PELVIC FRACTURE [None]
  - CONSTIPATION [None]
  - GASTRIC CANCER [None]
  - MENISCUS LESION [None]
  - BACK PAIN [None]
  - PATELLOFEMORAL PAIN SYNDROME [None]
  - LOW TURNOVER OSTEOPATHY [None]
  - INJURY [None]
  - ADVERSE EVENT [None]
  - SPINAL FRACTURE [None]
  - INTERVERTEBRAL DISC DISORDER [None]
  - KYPHOSIS [None]
  - FALL [None]
  - SURGERY [None]
  - OSTEOPOROSIS [None]
  - STRESS FRACTURE [None]
  - METASTASES TO SPINE [None]
  - FLATULENCE [None]
  - HYPOAESTHESIA [None]
  - ROAD TRAFFIC ACCIDENT [None]
  - ARTHRALGIA [None]
  - HYPERTENSION [None]
  - SPINAL COMPRESSION FRACTURE [None]
  - SPINAL OSTEOARTHRITIS [None]
  - BONE DISORDER [None]
